FAERS Safety Report 19620784 (Version 1)
Quarter: 2021Q3

REPORT INFORMATION
  Report Type: Spontaneous
  Country: AU (occurrence: AU)
  Receive Date: 20210728
  Receipt Date: 20210728
  Transmission Date: 20211014
  Serious: Yes (Other)
  Sender: FDA-Public Use
  Company Number: AU-ALKEM LABORATORIES LIMITED-AU-ALKEM-2020-04658

PATIENT
  Age: 61 Year
  Sex: Male

DRUGS (1)
  1. FINGOLIMOD. [Suspect]
     Active Substance: FINGOLIMOD
     Indication: RELAPSING-REMITTING MULTIPLE SCLEROSIS
     Dosage: UNK
     Route: 065

REACTIONS (6)
  - Disorganised speech [Unknown]
  - Somnolence [Unknown]
  - Lymphopenia [Recovering/Resolving]
  - Hydrocephalus [Unknown]
  - Weight decreased [Unknown]
  - Meningitis cryptococcal [Recovering/Resolving]
